FAERS Safety Report 24209918 (Version 2)
Quarter: 2024Q3

REPORT INFORMATION
  Report Type: Spontaneous
  Country: IR (occurrence: IR)
  Receive Date: 20240814
  Receipt Date: 20240823
  Transmission Date: 20241017
  Serious: Yes (Death, Other)
  Sender: PFIZER
  Company Number: IR-PFIZER INC-202400233668

PATIENT
  Age: 91 Year
  Sex: Male

DRUGS (11)
  1. MEROPENEM [Suspect]
     Active Substance: MEROPENEM
     Indication: Pneumonia
     Dosage: 1 G, 3X/DAY
     Route: 042
     Dates: start: 202207
  2. PIPERACILLIN SODIUM\TAZOBACTAM SODIUM [Suspect]
     Active Substance: PIPERACILLIN SODIUM\TAZOBACTAM SODIUM
     Indication: Pneumonia
     Dosage: UNK
     Dates: start: 202207
  3. AVIBACTAM SODIUM\CEFTAZIDIME [Suspect]
     Active Substance: AVIBACTAM SODIUM\CEFTAZIDIME
     Indication: Pneumonia
     Dosage: 1.25 G,  2X/DAY (Q12HR)
     Route: 042
     Dates: start: 202208
  4. LINEZOLID [Suspect]
     Active Substance: LINEZOLID
     Indication: Pneumonia
     Dosage: 600 MG, 2X/DAY
     Route: 042
     Dates: start: 202207
  5. TIGECYCLINE [Suspect]
     Active Substance: TIGECYCLINE
     Indication: Pneumonia
     Dosage: 100 MG, INITIAL DOSE
     Dates: start: 202207, end: 202207
  6. TIGECYCLINE [Suspect]
     Active Substance: TIGECYCLINE
     Dosage: 50 MG, 2X/DAY
     Route: 042
     Dates: start: 202207
  7. TOBRAMYCIN [Suspect]
     Active Substance: TOBRAMYCIN\TOBRAMYCIN SULFATE
     Indication: Pneumonia
     Dosage: UNK
     Route: 045
     Dates: start: 202208
  8. CIPROFLOXACIN [Suspect]
     Active Substance: CIPROFLOXACIN
     Indication: Pneumonia
     Dosage: UNK
     Dates: start: 2022
  9. AMPICILLIN SODIUM\SULBACTAM SODIUM [Suspect]
     Active Substance: AMPICILLIN SODIUM\SULBACTAM SODIUM
     Indication: Pneumonia
     Dosage: UNK
     Dates: start: 202208
  10. VANCOMYCIN [Suspect]
     Active Substance: VANCOMYCIN
     Indication: Pneumonia
     Dosage: UNK
     Dates: start: 202208
  11. COLISTIN [Suspect]
     Active Substance: COLISTIN
     Indication: Pneumonia
     Dosage: UNK
     Dates: start: 202207

REACTIONS (1)
  - Drug ineffective [Fatal]

NARRATIVE: CASE EVENT DATE: 20220701
